FAERS Safety Report 10374563 (Version 1)
Quarter: 2014Q3

REPORT INFORMATION
  Report Type: Other
  Country: IT (occurrence: IT)
  Receive Date: 20140811
  Receipt Date: 20140811
  Transmission Date: 20150326
  Serious: Yes (Other)
  Sender: FDA-Public Use
  Company Number: IT-LUPIN PHARMACEUTICALS INC.-2014-01407

PATIENT
  Age: 55 Year
  Sex: Female
  Weight: 68 kg

DRUGS (11)
  1. CEFTAZIDIME. [Suspect]
     Active Substance: CEFTAZIDIME
     Indication: ARTHRITIS INFECTIVE
     Route: 042
  2. CIPROFLOXACIN. [Suspect]
     Active Substance: CIPROFLOXACIN
     Indication: ARTHRITIS INFECTIVE
     Route: 048
  3. CEFTAZIDIME. [Suspect]
     Active Substance: CEFTAZIDIME
     Route: 042
  4. MEROPENEM. [Concomitant]
     Active Substance: MEROPENEM
     Indication: ARTHRITIS INFECTIVE
     Route: 042
  5. TEICOPLANIN [Suspect]
     Active Substance: TEICOPLANIN
     Indication: ARTHRITIS INFECTIVE
     Route: 042
  6. DAPTOMYCIN [Concomitant]
     Active Substance: DAPTOMYCIN
     Indication: ARTHRITIS INFECTIVE
     Route: 042
  7. RIFAMPIN. [Suspect]
     Active Substance: RIFAMPIN
     Indication: ARTHRITIS INFECTIVE
     Route: 048
  8. DAPTOMYCIN [Concomitant]
     Active Substance: DAPTOMYCIN
     Route: 042
  9. COLISTIN [Concomitant]
     Active Substance: COLISTIN
     Indication: ARTHRITIS INFECTIVE
     Route: 042
  10. COLISTIN [Concomitant]
     Active Substance: COLISTIN
     Route: 042
  11. COLISTIN [Concomitant]
     Active Substance: COLISTIN
     Route: 042

REACTIONS (2)
  - Hepatotoxicity [Unknown]
  - Multiple-drug resistance [Unknown]
